FAERS Safety Report 14802199 (Version 1)
Quarter: 2018Q2

REPORT INFORMATION
  Report Type: Spontaneous
  Country: US (occurrence: US)
  Receive Date: 20180424
  Receipt Date: 20180424
  Transmission Date: 20180711
  Serious: Yes (Other)
  Sender: FDA-Public Use
  Company Number: US-NAPPMUNDI-USA-2018-0142409

PATIENT
  Sex: Male

DRUGS (5)
  1. HYDROCODONE                        /00060002/ [Suspect]
     Active Substance: HYDROCODONE
     Indication: INJURY
  2. HYDROCODONE                        /00060002/ [Suspect]
     Active Substance: HYDROCODONE
     Indication: UPPER LIMB FRACTURE
     Dosage: UNK
     Route: 048
  3. HYDROCODONE                        /00060002/ [Suspect]
     Active Substance: HYDROCODONE
     Indication: UPPER LIMB FRACTURE
  4. HYDROCODONE                        /00060002/ [Suspect]
     Active Substance: HYDROCODONE
     Indication: PELVIC FRACTURE
  5. OXYCODONE HYDROCHLORIDE (SIMILAR TO NDA 22-272) [Suspect]
     Active Substance: OXYCODONE HYDROCHLORIDE
     Indication: DRUG ABUSE
     Dosage: UNK
     Route: 048

REACTIONS (1)
  - Drug abuse [Unknown]
